FAERS Safety Report 4811503-X (Version None)
Quarter: 2005Q4

REPORT INFORMATION
  Report Type: 
  Country: None (occurrence: None)
  Receive Date: 20051027
  Receipt Date: 20051019
  Transmission Date: 20060501
  Serious: Yes (Hospitalization)
  Sender: FDA-Public Use
  Company Number: PHEH2005US11675

PATIENT
  Age: 43 Year
  Sex: Female

DRUGS (3)
  1. CAFERGOT [Suspect]
     Indication: MIGRAINE
     Dosage: 1 MG/100MG, PRN
     Route: 048
  2. PERCOCET [Concomitant]
  3. XANAX [Concomitant]

REACTIONS (3)
  - CORONARY ANGIOPLASTY [None]
  - CORONARY ARTERIAL STENT INSERTION [None]
  - MYOCARDIAL INFARCTION [None]
